FAERS Safety Report 20094673 (Version 2)
Quarter: 2021Q4

REPORT INFORMATION
  Report Type: Spontaneous
  Country: US (occurrence: None)
  Receive Date: 20211122
  Receipt Date: 20211201
  Transmission Date: 20220303
  Serious: Yes (Hospitalization)
  Sender: FDA-Public Use
  Company Number: US-FARMAPROD-202110-1891

PATIENT
  Sex: Female

DRUGS (5)
  1. OXERVATE [Suspect]
     Active Substance: CENEGERMIN-BKBJ
     Indication: Neurotrophic keratopathy
     Route: 047
     Dates: start: 20210921, end: 20211008
  2. EYSUVIS [Concomitant]
     Active Substance: LOTEPREDNOL ETABONATE
  3. REFRESH CLASSIC [Concomitant]
     Active Substance: POLYVINYL ALCOHOL\POVIDONE
  4. XIIDRA [Concomitant]
     Active Substance: LIFITEGRAST
  5. RESTASIS [Concomitant]
     Active Substance: CYCLOSPORINE

REACTIONS (3)
  - Road traffic accident [Recovered/Resolved]
  - Conjunctival haemorrhage [Recovered/Resolved]
  - Ocular hyperaemia [Recovered/Resolved]
